FAERS Safety Report 17618732 (Version 10)
Quarter: 2022Q2

REPORT INFORMATION
  Report Type: Spontaneous
  Country: US (occurrence: US)
  Receive Date: 20200402
  Receipt Date: 20220425
  Transmission Date: 20220721
  Serious: No
  Sender: FDA-Public Use
  Company Number: US-PFIZER INC-2020137823

PATIENT
  Age: 71 Year
  Sex: Female
  Weight: 63 kg

DRUGS (8)
  1. LYRICA [Suspect]
     Active Substance: PREGABALIN
     Indication: Fibromyalgia
     Dosage: 50 MG, 2X/DAY (50MG; TAKE ONE TWICE DAILY BY MOUTH)
     Route: 048
     Dates: start: 2006
  2. LYRICA [Suspect]
     Active Substance: PREGABALIN
     Dosage: UNK
     Route: 048
     Dates: start: 2007, end: 2007
  3. LYRICA [Suspect]
     Active Substance: PREGABALIN
     Dosage: UNK
     Dates: start: 200709
  4. LYRICA [Suspect]
     Active Substance: PREGABALIN
     Dosage: 50 MG, 1X/DAY
     Route: 048
     Dates: end: 20200330
  5. LYRICA [Suspect]
     Active Substance: PREGABALIN
     Dosage: 100 MG, DAILY (TAKE 2 CAPSULE(S) EVERY DAY BY ORAL ROUT FOR 90 DAYS)
     Route: 048
     Dates: start: 2020
  6. LYRICA [Suspect]
     Active Substance: PREGABALIN
     Dosage: UNK
     Dates: start: 2020
  7. LYRICA [Suspect]
     Active Substance: PREGABALIN
     Dosage: 25 MG
  8. METOPROLOL SUCCINATE/METOPROLOL TARTRATE [Concomitant]
     Dosage: UNK
     Dates: start: 2000

REACTIONS (13)
  - Intentional dose omission [Unknown]
  - Intentional product misuse [Unknown]
  - Tension [Unknown]
  - Poor quality sleep [Unknown]
  - Arthralgia [Unknown]
  - Insomnia [Unknown]
  - Feeling abnormal [Unknown]
  - Discomfort [Unknown]
  - Pain [Unknown]
  - Head injury [Unknown]
  - Gait disturbance [Unknown]
  - Fall [Unknown]
  - Arthritis [Unknown]

NARRATIVE: CASE EVENT DATE: 20150101
